FAERS Safety Report 6828200-1 (Version None)
Quarter: 2010Q3

REPORT INFORMATION
  Report Type: 
  Country: None (occurrence: None)
  Receive Date: 20100709
  Receipt Date: 20070202
  Transmission Date: 20110219
  Serious: No
  Sender: FDA-Public Use
  Company Number: US-PFIZER INC-2007009753

PATIENT
  Sex: Female
  Weight: 59.87 kg

DRUGS (9)
  1. CHANTIX [Suspect]
     Indication: SMOKING CESSATION THERAPY
     Route: 048
     Dates: start: 20061228
  2. PREMARIN [Concomitant]
  3. VALSARTAN [Concomitant]
  4. CRESTOR [Concomitant]
  5. NORVASC [Concomitant]
  6. CENTRUM SILVER [Concomitant]
  7. OSCAL 500-D [Concomitant]
  8. VITAMIN D [Concomitant]
  9. ACETYLSALICYLIC ACID [Concomitant]

REACTIONS (2)
  - CONSTIPATION [None]
  - NAUSEA [None]
